FAERS Safety Report 13642556 (Version 1)
Quarter: 2017Q2

REPORT INFORMATION
  Report Type: Spontaneous
  Country: US (occurrence: US)
  Receive Date: 20170612
  Receipt Date: 20170612
  Transmission Date: 20170830
  Serious: No
  Sender: FDA-Public Use
  Company Number: US-SEPTODONT-201603544

PATIENT
  Age: 67 Year
  Sex: Male

DRUGS (13)
  1. SEPTOCAINE AND EPINEPHRINE [Suspect]
     Active Substance: ARTICAINE HYDROCHLORIDE\EPINEPHRINE BITARTRATE
     Indication: LOCAL ANAESTHESIA
     Dosage: INFILTRATION IN AMSA PALATE HEALTHY TISSUE WITH 1/2^ 27G NEEDLE. 0.5 ML FROM DRUG #1, #2, #3 AND #4
     Route: 004
     Dates: start: 20160620, end: 20160620
  2. VITAMIN B12 [Concomitant]
     Active Substance: CYANOCOBALAMIN
  3. SEPTOCAINE AND EPINEPHRINE [Suspect]
     Active Substance: ARTICAINE HYDROCHLORIDE\EPINEPHRINE BITARTRATE
     Indication: LOCAL ANAESTHESIA
     Dosage: INFILTRATION IN AMSA PALATE HEALTHY TISSUE WITH 1/2^ 27G NEEDLE. 0.5 ML FROM DRUG #1, #2, #3 AND #4
     Route: 004
     Dates: start: 20160620, end: 20160620
  4. ROSUVASTATIN CALCIUM. [Concomitant]
     Active Substance: ROSUVASTATIN CALCIUM
  5. METFORMIN [Concomitant]
     Active Substance: METFORMIN HYDROCHLORIDE
  6. SEPTOCAINE AND EPINEPHRINE [Suspect]
     Active Substance: ARTICAINE HYDROCHLORIDE\EPINEPHRINE BITARTRATE
     Indication: LOCAL ANAESTHESIA
     Dosage: INFILTRATION IN AMSA PALATE HEALTHY TISSUE WITH 1/2^ 27G NEEDLE. 0.5 ML FROM DRUG #1, #2, #3 AND #4
     Route: 004
     Dates: start: 20160620, end: 20160620
  7. BENZOCAINE. [Concomitant]
     Active Substance: BENZOCAINE
  8. ACETYLSALICYLIC ACID [Concomitant]
     Active Substance: ASPIRIN
  9. DEXLANSOPRAZOLE [Concomitant]
     Active Substance: DEXLANSOPRAZOLE
  10. SEPTOCAINE AND EPINEPHRINE [Suspect]
     Active Substance: ARTICAINE HYDROCHLORIDE\EPINEPHRINE BITARTRATE
     Indication: LOCAL ANAESTHESIA
     Dosage: INFILTRATION IN AMSA PALATE HEALTHY TISSUE WITH 1/2^ 27G NEEDLE. 0.5 ML FROM DRUG #1, #2, #3 AND #4
     Route: 004
     Dates: start: 20160620, end: 20160620
  11. LISINOPRIL. [Concomitant]
     Active Substance: LISINOPRIL
  12. ATENOLOL. [Concomitant]
     Active Substance: ATENOLOL
  13. GLIBENCLAMIDE [Concomitant]
     Active Substance: GLYBURIDE

REACTIONS (4)
  - Injection site ulcer [Recovered/Resolved]
  - Paraesthesia [Recovered/Resolved]
  - Discomfort [Recovered/Resolved with Sequelae]
  - Pain [Recovered/Resolved]

NARRATIVE: CASE EVENT DATE: 20160620
